FAERS Safety Report 7325467-0 (Version None)
Quarter: 2011Q1

REPORT INFORMATION
  Report Type: 
  Country: None (occurrence: None)
  Receive Date: 20110302
  Receipt Date: 20110221
  Transmission Date: 20110831
  Serious: Yes (Other)
  Sender: FDA-Public Use
  Company Number: ES-JNJFOC-20110206067

PATIENT
  Age: 50 Year
  Sex: Male

DRUGS (2)
  1. PARACETAMOL [Concomitant]
  2. REMICADE [Suspect]
     Indication: ANKYLOSING SPONDYLITIS
     Route: 042

REACTIONS (2)
  - INFUSION RELATED REACTION [None]
  - INFUSION SITE REACTION [None]
